FAERS Safety Report 25319907 (Version 2)
Quarter: 2025Q2

REPORT INFORMATION
  Report Type: Spontaneous
  Country: US (occurrence: US)
  Receive Date: 20250515
  Receipt Date: 20250521
  Transmission Date: 20250717
  Serious: Yes (Other)
  Sender: PFIZER
  Company Number: US-PFIZER INC-202500100263

PATIENT
  Age: 65 Year
  Sex: Female

DRUGS (8)
  1. TOBRAMYCIN [Suspect]
     Active Substance: TOBRAMYCIN
     Indication: Serratia infection
     Dosage: 300 MG, 2X/DAY (FOR 28-DAY CYCLE)
     Route: 055
  2. OMEPRAZOLE [Suspect]
     Active Substance: OMEPRAZOLE
  3. CYCLOSPORINE [Concomitant]
     Active Substance: CYCLOSPORINE
     Indication: Immunosuppression
  4. TACROLIMUS [Concomitant]
     Active Substance: TACROLIMUS
     Indication: Immunosuppression
  5. MYCOPHENOLIC ACID [Concomitant]
     Active Substance: MYCOPHENOLIC ACID
     Indication: Immunosuppression
  6. PREDNISONE [Concomitant]
     Active Substance: PREDNISONE
     Indication: Immunosuppression
  7. EVEROLIMUS [Concomitant]
     Active Substance: EVEROLIMUS
     Indication: Immunosuppression
  8. SODIUM CHLORIDE [Concomitant]
     Active Substance: SODIUM CHLORIDE

REACTIONS (5)
  - Nephropathy toxic [Recovering/Resolving]
  - Renal impairment [Recovering/Resolving]
  - Acute kidney injury [Recovering/Resolving]
  - Antibiotic level above therapeutic [Unknown]
  - Off label use [Unknown]
